FAERS Safety Report 19908896 (Version 2)
Quarter: 2021Q4

REPORT INFORMATION
  Report Type: Spontaneous
  Country: US (occurrence: US)
  Receive Date: 20211001
  Receipt Date: 20211215
  Transmission Date: 20220303
  Serious: No
  Sender: FDA-Public Use
  Company Number: US-JNJFOC-20210914105

PATIENT
  Age: 69 Year
  Sex: Female

DRUGS (1)
  1. TOPAMAX [Suspect]
     Active Substance: TOPIRAMATE
     Indication: Migraine
     Route: 048
     Dates: start: 2005, end: 2005

REACTIONS (7)
  - Influenza like illness [Recovered/Resolved]
  - Feeling abnormal [Recovered/Resolved]
  - Disorientation [Recovered/Resolved]
  - Oedema [Recovered/Resolved]
  - Fatigue [Recovered/Resolved]
  - Loss of personal independence in daily activities [Recovered/Resolved]
  - Drug ineffective [Unknown]

NARRATIVE: CASE EVENT DATE: 20050101
